FAERS Safety Report 8292350-6 (Version None)
Quarter: 2012Q2

REPORT INFORMATION
  Report Type: 
  Country: None (occurrence: None)
  Receive Date: 20120417
  Receipt Date: 20110708
  Transmission Date: 20120825
  Serious: No
  Sender: FDA-Public Use
  Company Number: US-BAUSCH-2011BL004614

PATIENT
  Sex: Female

DRUGS (3)
  1. FLUNISOLIDE [Suspect]
     Indication: EAR CONGESTION
     Route: 045
     Dates: start: 20110628, end: 20110629
  2. FLUNISOLIDE [Suspect]
     Indication: OFF LABEL USE
     Route: 045
     Dates: start: 20110628, end: 20110629
  3. IPRATROPIUM BROMIDE [Concomitant]
     Route: 045
     Dates: start: 20110601

REACTIONS (2)
  - THROAT IRRITATION [None]
  - NASAL DISCOMFORT [None]
